FAERS Safety Report 12154617 (Version 1)
Quarter: 2016Q1

REPORT INFORMATION
  Report Type: Spontaneous
  Country: US (occurrence: None)
  Receive Date: 20160304
  Receipt Date: 20160304
  Transmission Date: 20160526
  Serious: No
  Sender: FDA-Public Use
  Company Number: None

PATIENT
  Age: 62 Year
  Sex: Female

DRUGS (2)
  1. FML [Suspect]
     Active Substance: FLUOROMETHOLONE
  2. LATANOPROST. [Suspect]
     Active Substance: LATANOPROST

REACTIONS (4)
  - Ocular hyperaemia [None]
  - Headache [None]
  - Lacrimal disorder [None]
  - Eyelid oedema [None]
